FAERS Safety Report 23810554 (Version 1)
Quarter: 2024Q2

REPORT INFORMATION
  Report Type: Spontaneous
  Country: GB (occurrence: GB)
  Receive Date: 20240502
  Receipt Date: 20240502
  Transmission Date: 20240715
  Serious: Yes (Other)
  Sender: FDA-Public Use
  Company Number: None

PATIENT
  Age: 51 Year
  Sex: Male
  Weight: 88 kg

DRUGS (2)
  1. AMLODIPINE [Suspect]
     Active Substance: AMLODIPINE BESYLATE
     Indication: Product used for unknown indication
     Dosage: 1 DOSAGE FORM, QD (ONE TO BE TAKEN EACH DAY)
     Route: 065
     Dates: start: 20200422, end: 20200721
  2. TADALAFIL [Concomitant]
     Active Substance: TADALAFIL
     Indication: Cerebrovascular accident
     Dosage: 1 DOSAGE FORM (ONE TO BE TAKEN PER WEEK AS REQUIRED)
     Route: 065
     Dates: start: 20240328

REACTIONS (1)
  - Erectile dysfunction [Recovered/Resolved]
